FAERS Safety Report 24574434 (Version 1)
Quarter: 2024Q4

REPORT INFORMATION
  Report Type: Spontaneous
  Country: ES (occurrence: ES)
  Receive Date: 20241104
  Receipt Date: 20241104
  Transmission Date: 20250115
  Serious: Yes (Hospitalization)
  Sender: ACCORD
  Company Number: None

PATIENT
  Age: 72 Year
  Sex: Female

DRUGS (2)
  1. SPIRONOLACTONE [Suspect]
     Active Substance: SPIRONOLACTONE
     Indication: Acute coronary syndrome
     Dates: start: 20231214, end: 20240911
  2. LENVATINIB [Concomitant]
     Active Substance: LENVATINIB
     Indication: Thyroid cancer metastatic
     Dates: start: 2023

REACTIONS (2)
  - Hyponatraemia [Recovered/Resolved]
  - Somnolence [Recovered/Resolved]

NARRATIVE: CASE EVENT DATE: 20240908
